FAERS Safety Report 7390542-1 (Version None)
Quarter: 2011Q2

REPORT INFORMATION
  Report Type: 
  Country: None (occurrence: None)
  Receive Date: 20110403
  Receipt Date: 20090901
  Transmission Date: 20111010
  Serious: Yes (Other)
  Sender: FDA-Public Use
  Company Number: PHHY2009DE67755

PATIENT
  Sex: Male

DRUGS (5)
  1. CARBAMAZEPINE [Concomitant]
  2. EXTAVIA [Suspect]
     Indication: MULTIPLE SCLEROSIS
     Dosage: 1 ML (250 MCG),
     Route: 058
     Dates: start: 20090626
  3. TEMAZEPAM [Concomitant]
  4. TOLPERISONE [Concomitant]
  5. BACLOFEN [Concomitant]
     Dosage: 50 MG, DAILY

REACTIONS (6)
  - IMPAIRED SELF-CARE [None]
  - FALL [None]
  - GAIT DISTURBANCE [None]
  - FEMORAL NECK FRACTURE [None]
  - THROMBOSIS [None]
  - MENTAL DISORDER [None]
